FAERS Safety Report 5500827-9 (Version None)
Quarter: 2007Q4

REPORT INFORMATION
  Report Type: 
  Country: None (occurrence: None)
  Receive Date: 20071029
  Receipt Date: 20071019
  Transmission Date: 20080405
  Serious: Yes (Other)
  Sender: FDA-Public Use
  Company Number: B0491028A

PATIENT
  Age: 49 Year
  Sex: Female

DRUGS (2)
  1. FLIXONASE [Suspect]
     Route: 045
     Dates: start: 20070701, end: 20070818
  2. CETIRIZINE HCL [Concomitant]

REACTIONS (1)
  - EPISTAXIS [None]
